FAERS Safety Report 15126653 (Version 2)
Quarter: 2018Q4

REPORT INFORMATION
  Report Type: Spontaneous
  Country: FR (occurrence: FR)
  Receive Date: 20180710
  Receipt Date: 20181108
  Transmission Date: 20190204
  Serious: Yes (Other)
  Sender: FDA-Public Use
  Company Number: FR-MYLANLABS-2018M1048683

PATIENT
  Age: 39 Year
  Sex: Female

DRUGS (13)
  1. PREDNISONE. [Suspect]
     Active Substance: PREDNISONE
     Dosage: 12.5 MG, QD
     Route: 065
  2. PREDNISONE. [Suspect]
     Active Substance: PREDNISONE
     Indication: BIRDSHOT CHORIORETINOPATHY
     Dosage: 10 MG, QD
     Route: 065
  3. MYCOPHENOLATE MOFETIL. [Suspect]
     Active Substance: MYCOPHENOLATE MOFETIL
     Dosage: 2 G, QD
  4. METHYLPREDNISOLONE. [Suspect]
     Active Substance: METHYLPREDNISOLONE
     Indication: BIRDSHOT CHORIORETINOPATHY
     Dosage: 500 MG, QD, FOR THREE CONSECUTIVE DAYS
  5. MYCOPHENOLATE MOFETIL. [Suspect]
     Active Substance: MYCOPHENOLATE MOFETIL
     Indication: BIRDSHOT CHORIORETINOPATHY
     Dosage: FOR THREE CONSECUTIVE DAYS
  6. PREDNISONE. [Suspect]
     Active Substance: PREDNISONE
     Dosage: 40 MG, UNK
     Route: 065
  7. TOCILIZUMAB. [Suspect]
     Active Substance: TOCILIZUMAB
     Indication: BIRDSHOT CHORIORETINOPATHY
     Dosage: 8 MG/KG, MONTHLY, EVETY 4 WEEKS
  8. INTERFERON ALFA 2A [Suspect]
     Active Substance: INTERFERON ALFA-2A
     Indication: BIRDSHOT CHORIORETINOPATHY
     Dosage: 3 MILLION UNITS
  9. INFLIXIMAB [Suspect]
     Active Substance: INFLIXIMAB
     Indication: BIRDSHOT CHORIORETINOPATHY
     Dosage: UNK
  10. PREDNISONE. [Suspect]
     Active Substance: PREDNISONE
     Dosage: 20 MG, QD
  11. HUMIRA [Suspect]
     Active Substance: ADALIMUMAB
     Indication: BIRDSHOT CHORIORETINOPATHY
     Dosage: EVERY TWO WEEKS
  12. PREDNISONE. [Suspect]
     Active Substance: PREDNISONE
     Dosage: 9 MG, QD
     Route: 065
  13. PREDNISONE. [Suspect]
     Active Substance: PREDNISONE
     Dosage: 1 MG/KG, QD

REACTIONS (6)
  - Birdshot chorioretinopathy [Recovering/Resolving]
  - Rebound effect [Unknown]
  - Macular oedema [Recovering/Resolving]
  - Drug dependence [Unknown]
  - Drug ineffective [Unknown]
  - Lung infection [Unknown]
